FAERS Safety Report 5194547-0 (Version None)
Quarter: 2006Q4

REPORT INFORMATION
  Report Type: 
  Country: None (occurrence: None)
  Receive Date: 20061221
  Receipt Date: 20061208
  Transmission Date: 20070319
  Serious: Yes (Disabling)
  Sender: FDA-Public Use
  Company Number: 233645

PATIENT
  Age: 62 Year
  Sex: Female
  Weight: 76 kg

DRUGS (3)
  1. RANIBIZUMAB ( RANIBIZUMAB) PWDR + SOLVENT, INJECTION SOLN [Suspect]
     Indication: CHOROIDAL NEOVASCULARISATION
  2. VERTEPORFIN (VERTEPORFIN) [Suspect]
     Indication: CHOROIDAL NEOVASCULARISATION
  3. AVASTIN [Concomitant]

REACTIONS (1)
  - CONJUNCTIVAL DISORDER [None]
